FAERS Safety Report 16040837 (Version 2)
Quarter: 2019Q1

REPORT INFORMATION
  Report Type: Report from Study
  Country: US (occurrence: US)
  Receive Date: 20190306
  Receipt Date: 20190320
  Transmission Date: 20190418
  Serious: Yes (Death, Hospitalization)
  Sender: FDA-Public Use
  Company Number: US-SA-2019SA057473

PATIENT
  Age: 77 Year
  Sex: Male

DRUGS (2)
  1. NOVOLOG [Concomitant]
     Active Substance: INSULIN ASPART
     Indication: DIABETES MELLITUS
     Dosage: UNK
  2. INSULIN GLARGINE [Suspect]
     Active Substance: INSULIN GLARGINE
     Indication: DIABETES MELLITUS
     Dosage: 15 U, QD, IN THE MORNING
     Route: 058

REACTIONS (10)
  - Ulcer haemorrhage [Recovered/Resolved]
  - Osteomyelitis [Unknown]
  - Death [Fatal]
  - Femoral artery aneurysm [Unknown]
  - Toe amputation [Unknown]
  - Loss of consciousness [Recovered/Resolved]
  - Peripheral artery occlusion [Unknown]
  - Venous aneurysm [Unknown]
  - Sepsis [Not Recovered/Not Resolved]
  - Pelvic haemorrhage [Unknown]

NARRATIVE: CASE EVENT DATE: 201901
